FAERS Safety Report 5526267-4 (Version None)
Quarter: 2007Q4

REPORT INFORMATION
  Report Type: 
  Country: None (occurrence: None)
  Receive Date: 20071121
  Receipt Date: 20071121
  Transmission Date: 20080405
  Serious: Yes (Hospitalization)
  Sender: FDA-Public Use
  Company Number: None

PATIENT
  Age: 74 Year
  Sex: Male
  Weight: 54.4316 kg

DRUGS (3)
  1. DESMOPRESSIN [Suspect]
     Indication: NOCTURIA
     Dosage: 0.4MG  HS  PO
     Route: 048
     Dates: start: 20060525, end: 20070701
  2. ASPIRIN [Concomitant]
  3. ATENOLOL [Concomitant]

REACTIONS (4)
  - HYPONATRAEMIA [None]
  - NAUSEA [None]
  - ORAL INTAKE REDUCED [None]
  - VOMITING [None]
